FAERS Safety Report 11616209 (Version 1)
Quarter: 2015Q4

REPORT INFORMATION
  Report Type: Spontaneous
  Country: US (occurrence: US)
  Receive Date: 20151009
  Receipt Date: 20151009
  Transmission Date: 20160304
  Serious: Yes (Other)
  Sender: FDA-Public Use
  Company Number: US-NOVEN PHARMACEUTICALS, INC.-US2015000871

PATIENT
  Age: 9 Year
  Sex: Female

DRUGS (3)
  1. MIRALAX [Concomitant]
     Active Substance: POLYETHYLENE GLYCOL 3350
     Dosage: UNK
     Dates: start: 20130212
  2. DAYTRANA [Suspect]
     Active Substance: METHYLPHENIDATE
     Indication: ATTENTION DEFICIT/HYPERACTIVITY DISORDER
     Dosage: 10 MG, UNKNOWN
     Route: 062
     Dates: start: 20120822, end: 201304
  3. MULTIVITAMINS [Concomitant]
     Active Substance: VITAMINS
     Dosage: UNK
     Dates: start: 20120822, end: 2014

REACTIONS (11)
  - Melanocytic naevus [Unknown]
  - Keloid scar [Unknown]
  - Anger [Unknown]
  - Seborrhoeic dermatitis [Unknown]
  - Multiple injuries [Unknown]
  - Off label use [Unknown]
  - Vitiligo [Not Recovered/Not Resolved]
  - Leukoderma [Not Recovered/Not Resolved]
  - Application site erythema [Unknown]
  - Scar [Unknown]
  - Weight decreased [Unknown]

NARRATIVE: CASE EVENT DATE: 201210
